FAERS Safety Report 20482686 (Version 6)
Quarter: 2022Q3

REPORT INFORMATION
  Report Type: Report from Study
  Country: US (occurrence: US)
  Receive Date: 20220217
  Receipt Date: 20220801
  Transmission Date: 20221027
  Serious: No
  Sender: FDA-Public Use
  Company Number: US-NOVARTISTESTPH-NVSC2022US035994

PATIENT
  Sex: Female

DRUGS (1)
  1. ENTRESTO [Suspect]
     Active Substance: SACUBITRIL\VALSARTAN
     Indication: Product used for unknown indication
     Dosage: 1 DOSAGE FORM, BID
     Route: 048
     Dates: start: 20220109

REACTIONS (6)
  - Arterial occlusive disease [Unknown]
  - Infection [Unknown]
  - Epistaxis [Recovering/Resolving]
  - Post procedural infection [Recovering/Resolving]
  - Heart rate increased [Unknown]
  - Hypotension [Recovering/Resolving]
